FAERS Safety Report 11597146 (Version 3)
Quarter: 2015Q4

REPORT INFORMATION
  Report Type: Spontaneous
  Country: SK (occurrence: SK)
  Receive Date: 20151006
  Receipt Date: 20151015
  Transmission Date: 20160304
  Serious: Yes (Hospitalization, Other)
  Sender: FDA-Public Use
  Company Number: SK-SA-2015SA149076

PATIENT
  Sex: Female

DRUGS (1)
  1. AUBAGIO [Suspect]
     Active Substance: TERIFLUNOMIDE
     Indication: MULTIPLE SCLEROSIS
     Route: 048
     Dates: start: 20150410

REACTIONS (4)
  - Gastritis erosive [Unknown]
  - Gastric haemorrhage [Unknown]
  - Haemoglobin decreased [Recovering/Resolving]
  - Faeces discoloured [Unknown]
